FAERS Safety Report 18308122 (Version 3)
Quarter: 2021Q1

REPORT INFORMATION
  Report Type: Spontaneous
  Country: US (occurrence: US)
  Receive Date: 20200924
  Receipt Date: 20210115
  Transmission Date: 20210419
  Serious: Yes (Hospitalization, Other)
  Sender: FDA-Public Use
  Company Number: US-PFIZER INC-2020365714

PATIENT
  Age: 70 Year
  Sex: Male
  Weight: 89.81 kg

DRUGS (2)
  1. VYNDAMAX [Suspect]
     Active Substance: TAFAMIDIS
     Indication: AMYLOIDOSIS
     Dosage: 61 MG, UNK
     Dates: start: 202008
  2. ASPIRIN [ACETYLSALICYLIC ACID] [Concomitant]
     Active Substance: ASPIRIN
     Dosage: UNK

REACTIONS (13)
  - Gait disturbance [Unknown]
  - Off label use [Unknown]
  - Skin discharge [Unknown]
  - Testicular swelling [Unknown]
  - Cardiac failure congestive [Unknown]
  - Respiration abnormal [Unknown]
  - Blood creatinine increased [Unknown]
  - Insomnia [Unknown]
  - Fluid retention [Unknown]
  - Drug ineffective for unapproved indication [Unknown]
  - Paraesthesia [Unknown]
  - Aggression [Unknown]
  - Pruritus [Not Recovered/Not Resolved]
